FAERS Safety Report 15934463 (Version 1)
Quarter: 2019Q1

REPORT INFORMATION
  Report Type: Spontaneous
  Country: DE (occurrence: DE)
  Receive Date: 20190207
  Receipt Date: 20190207
  Transmission Date: 20190417
  Serious: Yes (Disabling, Other)
  Sender: FDA-Public Use
  Company Number: DE-MYLANLABS-2019M1011058

PATIENT

DRUGS (1)
  1. QUININE [Suspect]
     Active Substance: QUININE
     Indication: PRODUCT USED FOR UNKNOWN INDICATION
     Dosage: UNK
     Route: 065

REACTIONS (7)
  - Overdose [Unknown]
  - Drug abuse [Unknown]
  - Blindness [Unknown]
  - Deafness [Unknown]
  - Vestibular disorder [Recovered/Resolved]
  - Toxicity to various agents [Unknown]
  - Vertigo [Recovered/Resolved]
